FAERS Safety Report 23334084 (Version 1)
Quarter: 2023Q4

REPORT INFORMATION
  Report Type: Spontaneous
  Country: CN (occurrence: CN)
  Receive Date: 20231223
  Receipt Date: 20231223
  Transmission Date: 20240109
  Serious: Yes (Hospitalization, Other)
  Sender: FDA-Public Use
  Company Number: CN-Accord-396820

PATIENT
  Age: 60 Year
  Sex: Female

DRUGS (1)
  1. HYDROXYCHLOROQUINE [Suspect]
     Active Substance: HYDROXYCHLOROQUINE
     Indication: Rheumatoid arthritis
     Dosage: 0.2 G TWICE DAILY FOR MORE THAN 1 YEAR.
     Dates: end: 2020

REACTIONS (1)
  - Focal nodular hyperplasia [Unknown]

NARRATIVE: CASE EVENT DATE: 20200101
